FAERS Safety Report 15058418 (Version 1)
Quarter: 2018Q2

REPORT INFORMATION
  Report Type: Spontaneous
  Country: JP (occurrence: JP)
  Receive Date: 20180625
  Receipt Date: 20180625
  Transmission Date: 20180711
  Serious: Yes (Death, Hospitalization, Other)
  Sender: FDA-Public Use
  Company Number: JP-ACCORD-068977

PATIENT
  Age: 70 Year
  Sex: Female
  Weight: 35 kg

DRUGS (1)
  1. METHOTREXATE. [Suspect]
     Active Substance: METHOTREXATE
     Indication: RHEUMATOID ARTHRITIS

REACTIONS (3)
  - Angiocentric lymphoma [Fatal]
  - Epstein-Barr virus infection [Fatal]
  - Respiratory failure [Not Recovered/Not Resolved]
